FAERS Safety Report 5428882-5 (Version None)
Quarter: 2007Q3

REPORT INFORMATION
  Report Type: 
  Country: None (occurrence: None)
  Receive Date: 20070827
  Receipt Date: 20070810
  Transmission Date: 20080115
  Serious: Yes (Hospitalization)
  Sender: FDA-Public Use
  Company Number: 2007BI016046

PATIENT
  Age: 56 Year
  Sex: Female

DRUGS (11)
  1. AVONEX [Suspect]
     Indication: MULTIPLE SCLEROSIS
     Dosage: 20 UG; QW; IM, 15 UG; QW; IM
     Route: 030
     Dates: start: 20070627, end: 20070709
  2. AVONEX [Suspect]
     Indication: MULTIPLE SCLEROSIS
     Dosage: 20 UG; QW; IM, 15 UG; QW; IM
     Route: 030
     Dates: start: 20070710
  3. TERNELIN [Concomitant]
  4. METHYCOBAL [Concomitant]
  5. MOBIC [Concomitant]
  6. PRAVASTATIN [Concomitant]
  7. DEPAKENE [Concomitant]
  8. CLONAZEPAM [Concomitant]
  9. SELBEX [Concomitant]
  10. MAGNITT [Concomitant]
  11. GABAPEN [Concomitant]

REACTIONS (5)
  - ANAEMIA [None]
  - DEPRESSION [None]
  - HYPOPROTEINAEMIA [None]
  - PYREXIA [None]
  - STRESS [None]
